FAERS Safety Report 5618484-X (Version None)
Quarter: 2008Q1

REPORT INFORMATION
  Report Type: 
  Country: None (occurrence: None)
  Receive Date: 20080207
  Receipt Date: 20080201
  Transmission Date: 20080703
  Serious: Yes (Hospitalization)
  Sender: FDA-Public Use
  Company Number: B0504819A

PATIENT
  Age: 15 Month
  Sex: Male
  Weight: 9 kg

DRUGS (3)
  1. ZIDOVUDINE [Suspect]
     Indication: HIV INFECTION
     Dosage: 105MG TWICE PER DAY
     Route: 048
     Dates: start: 20061026
  2. LAMIVUDINE [Suspect]
     Indication: HIV INFECTION
     Dosage: 40MG TWICE PER DAY
     Route: 048
     Dates: start: 20061026
  3. KALETRA [Suspect]
     Indication: HIV INFECTION
     Dosage: 1.3ML TWICE PER DAY
     Route: 048
     Dates: start: 20061026

REACTIONS (7)
  - DEHYDRATION [None]
  - GASTROENTERITIS [None]
  - LACTIC ACIDOSIS [None]
  - MYOCARDITIS [None]
  - NEUTROPENIA [None]
  - PNEUMONIA [None]
  - SEPSIS [None]
